FAERS Safety Report 17263644 (Version 1)
Quarter: 2020Q1

REPORT INFORMATION
  Report Type: Spontaneous
  Country: PK (occurrence: PK)
  Receive Date: 20200113
  Receipt Date: 20200113
  Transmission Date: 20200409
  Serious: Yes (Other)
  Sender: FDA-Public Use
  Company Number: PK-SA-2020SA006561

PATIENT
  Age: 50 Year
  Sex: Female

DRUGS (6)
  1. GABICA [Concomitant]
     Dosage: 100 MG, QD
     Route: 065
  2. TOUJEO [Suspect]
     Active Substance: INSULIN GLARGINE
     Indication: DIABETES MELLITUS
     Dosage: 40 IU, HS
     Route: 058
     Dates: start: 20190109
  3. AMARYL [Concomitant]
     Active Substance: GLIMEPIRIDE
     Dosage: 4 MG, UNK
     Route: 065
  4. INOSITA [Concomitant]
     Active Substance: SITAGLIPTIN PHOSPHATE
     Dosage: UNK UNK, UNK
     Route: 065
  5. MISAR H [Concomitant]
     Dosage: UNK UNK, UNK
     Route: 065
  6. GABICA [Concomitant]
     Dosage: 100MG IN MORNING AND 300 MG IN EVENING
     Route: 065

REACTIONS (4)
  - Diabetes mellitus inadequate control [Recovering/Resolving]
  - Hyperglycaemia [Recovering/Resolving]
  - Pain in extremity [Recovering/Resolving]
  - Hepatic steatosis [Not Recovered/Not Resolved]

NARRATIVE: CASE EVENT DATE: 20191209
